FAERS Safety Report 6303289-7 (Version None)
Quarter: 2009Q3

REPORT INFORMATION
  Report Type: 
  Country: None (occurrence: None)
  Receive Date: 20090810
  Receipt Date: 20090521
  Transmission Date: 20100115
  Serious: No
  Sender: FDA-Public Use
  Company Number: A0785562A

PATIENT
  Age: 43 Year
  Sex: Male

DRUGS (4)
  1. PAXIL [Suspect]
     Indication: DEPRESSION
     Route: 048
     Dates: start: 20090422
  2. XANAX [Concomitant]
  3. LIALDA [Concomitant]
  4. CADUET [Concomitant]

REACTIONS (1)
  - DIPLOPIA [None]
